FAERS Safety Report 5064472-4 (Version None)
Quarter: 2006Q3

REPORT INFORMATION
  Report Type: 
  Country: None (occurrence: None)
  Receive Date: 20060725
  Receipt Date: 20060710
  Transmission Date: 20061208
  Serious: Yes (Hospitalization)
  Sender: FDA-Public Use
  Company Number: US-2006-008767

PATIENT
  Age: 51 Year
  Sex: Female

DRUGS (7)
  1. BETASERON [Suspect]
     Indication: RELAPSING-REMITTING MULTIPLE SCLEROSIS
     Dosage: 8 MIU, EVERY 2D, SUBCUTANEOUS; SEE IMAGE
     Route: 058
     Dates: start: 20031213, end: 20060405
  2. BETASERON [Suspect]
     Indication: RELAPSING-REMITTING MULTIPLE SCLEROSIS
     Dosage: 8 MIU, EVERY 2D, SUBCUTANEOUS; SEE IMAGE
     Route: 058
     Dates: start: 20060415
  3. METHADONE HCL [Concomitant]
  4. VALIUM [Concomitant]
  5. MIRALAX [Concomitant]
  6. BACLOFEN [Concomitant]
  7. SYNTHROID [Concomitant]

REACTIONS (4)
  - CHOKING [None]
  - LOSS OF CONSCIOUSNESS [None]
  - RASH [None]
  - VOMITING [None]
